FAERS Safety Report 4362156-9 (Version None)
Quarter: 2004Q2

REPORT INFORMATION
  Report Type: 
  Country: None (occurrence: None)
  Receive Date: 20040517
  Receipt Date: 20040504
  Transmission Date: 20050107
  Serious: Yes (Other)
  Sender: FDA-Public Use
  Company Number: 2004030659

PATIENT
  Age: 55 Year

DRUGS (2)
  1. DOXYCYCLINE      (DOXYCYCLINE) [Suspect]
     Indication: MALARIA PROPHYLAXIS
     Dosage: ORAL
     Route: 048
     Dates: start: 20040402, end: 20040422
  2. FERROUS SULFATE TAB [Concomitant]

REACTIONS (2)
  - ODYNOPHAGIA [None]
  - OESOPHAGEAL ULCER [None]
